FAERS Safety Report 4361477-3 (Version None)
Quarter: 2004Q2

REPORT INFORMATION
  Report Type: 
  Country: None (occurrence: None)
  Receive Date: 20040521
  Receipt Date: 20030821
  Transmission Date: 20050107
  Serious: No
  Sender: FDA-Public Use
  Company Number: US-GLAXOSMITHKLINE-A0422909A

PATIENT
  Age: 36 Year
  Sex: Female

DRUGS (3)
  1. ZYBAN [Suspect]
     Dosage: 150MG PER DAY
     Route: 048
     Dates: start: 20030528, end: 20030611
  2. ORTHO TRI-CYCLEN [Concomitant]
  3. XALATAN [Concomitant]
     Indication: ILL-DEFINED DISORDER

REACTIONS (1)
  - METRORRHAGIA [None]
